FAERS Safety Report 9147917 (Version 1)
Quarter: 2013Q1

REPORT INFORMATION
  Report Type: Spontaneous
  Country: AU (occurrence: AU)
  Receive Date: 20130307
  Receipt Date: 20130307
  Transmission Date: 20140127
  Serious: Yes (Hospitalization)
  Sender: FDA-Public Use
  Company Number: AU-009507513-1303AUS001546

PATIENT
  Age: 63 Year
  Sex: Male

DRUGS (6)
  1. ASENAPINE MALEATE [Suspect]
     Dosage: UNK
     Route: 060
     Dates: start: 20121120, end: 20121210
  2. ATORVASTATIN [Concomitant]
  3. VITAMINS (UNSPECIFIED) [Concomitant]
  4. SERTRALINE HYDROCHLORIDE [Concomitant]
  5. THIAMINE [Concomitant]
  6. ZOPICLONE [Concomitant]

REACTIONS (1)
  - Condition aggravated [Recovered/Resolved]
